FAERS Safety Report 6172250-8 (Version None)
Quarter: 2009Q2

REPORT INFORMATION
  Report Type: 
  Country: None (occurrence: None)
  Receive Date: 20090429
  Receipt Date: 20090201
  Transmission Date: 20091009
  Serious: Yes (Death)
  Sender: FDA-Public Use
  Company Number: TR-JNJFOC-20090404016

PATIENT
  Sex: Female

DRUGS (5)
  1. DURAGESIC-100 [Suspect]
  2. DURAGESIC-100 [Suspect]
  3. DURAGESIC-100 [Suspect]
  4. DURAGESIC-100 [Suspect]
  5. DURAGESIC-100 [Suspect]
     Indication: ANALGESIA

REACTIONS (7)
  - BACK PAIN [None]
  - BREAST CANCER [None]
  - DRUG INEFFECTIVE [None]
  - HYPOAESTHESIA [None]
  - METASTASES TO BONE [None]
  - NAUSEA [None]
  - PAIN IN EXTREMITY [None]
